FAERS Safety Report 11445166 (Version 1)
Quarter: 2015Q3

REPORT INFORMATION
  Report Type: Spontaneous
  Country: US (occurrence: None)
  Receive Date: 20150901
  Receipt Date: 20150901
  Transmission Date: 20151125
  Serious: Yes (Hospitalization)
  Sender: FDA-Public Use
  Company Number: None

PATIENT
  Age: 31 Year
  Sex: Female
  Weight: 76.2 kg

DRUGS (5)
  1. ESSURE [Suspect]
     Active Substance: DEVICE
  2. MIRENA [Suspect]
     Active Substance: LEVONORGESTREL
     Dates: start: 20140530, end: 20150618
  3. ZYNC VITAMIN B [Concomitant]
  4. VITAMIN C [Concomitant]
     Active Substance: ASCORBIC ACID
  5. MULTI VITAMINS [Concomitant]

REACTIONS (8)
  - Haemorrhage [None]
  - Muscle spasms [None]
  - Hysterectomy [None]
  - Device dislocation [None]
  - Impaired work ability [None]
  - Clostridium difficile infection [None]
  - Vomiting [None]
  - Abdominal pain upper [None]

NARRATIVE: CASE EVENT DATE: 20140530
